FAERS Safety Report 7972476 (Version 3)
Quarter: 2014Q1

REPORT INFORMATION
  Report Type: Spontaneous
  Country: US (occurrence: US)
  Receive Date: 20110603
  Receipt Date: 20140210
  Transmission Date: 20141002
  Serious: Yes (Hospitalization, Other)
  Sender: FDA-Public Use
  Company Number: US-BAYER-2010-002189

PATIENT
  Age: 21 Year
  Sex: Female
  Weight: 49.89 kg

DRUGS (4)
  1. YASMIN [Suspect]
     Dosage: UNK
     Dates: start: 2003
  2. NUVARING [Concomitant]
     Dosage: UNK
     Dates: start: 2006, end: 2007
  3. GOODYS [Concomitant]
     Dosage: UNK
     Dates: start: 20070724
  4. IBUPROFEN [Concomitant]
     Dosage: UNK
     Dates: start: 20070724

REACTIONS (3)
  - Gallbladder injury [None]
  - Cholecystitis [None]
  - Gastric disorder [None]
